FAERS Safety Report 9365043 (Version 2)
Quarter: 2013Q3

REPORT INFORMATION
  Report Type: Spontaneous
  Country: US (occurrence: US)
  Receive Date: 20130624
  Receipt Date: 20130712
  Transmission Date: 20140515
  Serious: Yes (Other)
  Sender: FDA-Public Use
  Company Number: US-PFIZER INC-2013184839

PATIENT
  Age: 52 Year
  Sex: Female

DRUGS (5)
  1. EPIPEN [Suspect]
     Indication: HYPERSENSITIVITY
     Dosage: 0.3 ML, AS NEEDED TWICE DAILY
     Dates: start: 201002
  2. ARMOUR THYROID [Concomitant]
     Dosage: 30 MG, 1X/DAY
     Route: 048
  3. POTASSIUM CHLORIDE [Concomitant]
     Dosage: 20 MEQ, 2X/DAY
     Route: 048
  4. HYDROCHLOROTHIAZIDE/TRIAMTERENE [Concomitant]
     Dosage: 37.5/25 MG, DAILY
     Route: 048
  5. CLONAZEPAM [Concomitant]
     Dosage: 0.5 MG, (1/2 TO 1 TABLET DAILY) AS NEEDED
     Route: 048

REACTIONS (1)
  - Drug ineffective [Not Recovered/Not Resolved]
